FAERS Safety Report 5217964-9 (Version None)
Quarter: 2007Q1

REPORT INFORMATION
  Report Type: 
  Country: None (occurrence: None)
  Receive Date: 20070124
  Receipt Date: 20070110
  Transmission Date: 20070707
  Serious: No
  Sender: FDA-Public Use
  Company Number: PHNR2006AU01376

PATIENT
  Age: 9 Year
  Sex: Male

DRUGS (3)
  1. RITALIN LA [Suspect]
     Dosage: 30 MG
     Route: 048
  2. RITALIN LA [Suspect]
     Dosage: 20 MG
     Route: 048
     Dates: start: 20060901
  3. RITALIN LA [Suspect]
     Dosage: 10 MG
     Route: 048

REACTIONS (1)
  - AGITATION [None]
